FAERS Safety Report 5672662-2 (Version None)
Quarter: 2008Q1

REPORT INFORMATION
  Report Type: 
  Country: None (occurrence: None)
  Receive Date: 20080319
  Receipt Date: 20070705
  Transmission Date: 20080703
  Serious: No
  Sender: FDA-Public Use
  Company Number: US-KINGPHARMUSA00001-K200700853

PATIENT

DRUGS (4)
  1. ALTACE [Suspect]
     Indication: RENAL DISORDER
     Dosage: 2.5 MG, QD IN AM
     Route: 048
     Dates: start: 20070629
  2. PREVACID [Concomitant]
     Dosage: 30 MG, QD
  3. ZOCOR [Concomitant]
     Dosage: 20 MG, BID
  4. AMARYL [Concomitant]
     Dosage: 1 MG, BID

REACTIONS (1)
  - PHARYNGOLARYNGEAL PAIN [None]
